FAERS Safety Report 20820552 (Version 9)
Quarter: 2022Q4

REPORT INFORMATION
  Report Type: Report from Study
  Country: US (occurrence: US)
  Receive Date: 20220512
  Receipt Date: 20221125
  Transmission Date: 20230113
  Serious: Yes (Other)
  Sender: FDA-Public Use
  Company Number: US-NOVARTISTESTPH-NVSC2022US108057

PATIENT
  Sex: Female
  Weight: 87.54 kg

DRUGS (1)
  1. KESIMPTA [Suspect]
     Active Substance: OFATUMUMAB
     Indication: Multiple sclerosis
     Dosage: 20 MG/0.4 ML (FIRST INJECTION)
     Route: 065
     Dates: start: 20211014, end: 20221108

REACTIONS (37)
  - Multiple sclerosis [Recovered/Resolved with Sequelae]
  - Muscle spasms [Not Recovered/Not Resolved]
  - Dysphagia [Recovered/Resolved with Sequelae]
  - Fall [Recovered/Resolved with Sequelae]
  - Mental disorder [Recovering/Resolving]
  - Thyroid disorder [Not Recovered/Not Resolved]
  - Confusional state [Recovered/Resolved with Sequelae]
  - Hemiparesis [Unknown]
  - Choking sensation [Unknown]
  - Ataxia [Recovered/Resolved with Sequelae]
  - Amnesia [Recovered/Resolved with Sequelae]
  - Muscle spasticity [Not Recovered/Not Resolved]
  - Joint injury [Unknown]
  - Asthma [Unknown]
  - Frustration tolerance decreased [Unknown]
  - Feeling abnormal [Not Recovered/Not Resolved]
  - Stress [Unknown]
  - Hypertension [Unknown]
  - Fibrin D dimer increased [Unknown]
  - Colitis [Unknown]
  - Oesophageal pain [Unknown]
  - Cyst [Unknown]
  - Tachycardia [Unknown]
  - Fatigue [Recovering/Resolving]
  - Gait disturbance [Unknown]
  - Injection site pain [Unknown]
  - Memory impairment [Not Recovered/Not Resolved]
  - Sleep disorder [Not Recovered/Not Resolved]
  - Spinal pain [Not Recovered/Not Resolved]
  - Neck pain [Not Recovered/Not Resolved]
  - Asthenia [Unknown]
  - Headache [Unknown]
  - Dysphemia [Unknown]
  - Emotional disorder [Unknown]
  - Aphasia [Unknown]
  - Crying [Unknown]
  - Drug ineffective [Unknown]
